FAERS Safety Report 4806485-0 (Version None)
Quarter: 2005Q4

REPORT INFORMATION
  Report Type: 
  Country: None (occurrence: None)
  Receive Date: 20051021
  Receipt Date: 20051010
  Transmission Date: 20060501
  Serious: Yes (Hospitalization)
  Sender: FDA-Public Use
  Company Number: FR-BRISTOL-MYERS SQUIBB COMPANY-13141775

PATIENT
  Age: 50 Year
  Sex: Female
  Weight: 62 kg

DRUGS (7)
  1. SKENAN PROL RELEASE GRAN CAPS [Suspect]
     Route: 048
     Dates: end: 20050831
  2. HOLOXAN [Suspect]
     Indication: SARCOMA
     Route: 042
     Dates: start: 20050808, end: 20050831
  3. UROMITEXAN [Suspect]
     Dates: start: 20050808, end: 20050901
  4. LARGACTIL [Suspect]
     Route: 042
     Dates: start: 20050808, end: 20050831
  5. PRIMPERAN INJ [Suspect]
     Route: 042
     Dates: start: 20050808, end: 20050831
  6. DOXORUBICIN HCL [Suspect]
     Indication: SARCOMA
     Dates: start: 20050808, end: 20050831
  7. SOLU-MEDROL [Concomitant]

REACTIONS (1)
  - ENCEPHALOPATHY [None]
